FAERS Safety Report 5801021-4 (Version None)
Quarter: 2008Q3

REPORT INFORMATION
  Report Type: 
  Country: None (occurrence: None)
  Receive Date: 20080704
  Receipt Date: 20080630
  Transmission Date: 20090109
  Serious: Yes (Other)
  Sender: FDA-Public Use
  Company Number: US-BAYER-200827011NA

PATIENT
  Age: 49 Year
  Sex: Female

DRUGS (3)
  1. MENOSTAR [Suspect]
     Indication: OESTROGEN REPLACEMENT THERAPY
     Dosage: UNIT DOSE: 0.014 MG
     Route: 062
     Dates: start: 20080422, end: 20080401
  2. MENOSTAR [Suspect]
     Dosage: UNIT DOSE: 0.014 MG
     Route: 062
  3. ZYRTEC [Concomitant]

REACTIONS (3)
  - BREAST CALCIFICATIONS [None]
  - BREAST SWELLING [None]
  - BREAST TENDERNESS [None]
